FAERS Safety Report 6101003-1 (Version None)
Quarter: 2009Q1

REPORT INFORMATION
  Report Type: 
  Country: None (occurrence: None)
  Receive Date: 20090227
  Receipt Date: 20090224
  Transmission Date: 20090719
  Serious: Yes (Death, Hospitalization)
  Sender: FDA-Public Use
  Company Number: FACT0800192

PATIENT
  Age: 94 Year
  Sex: Male

DRUGS (10)
  1. FACTIVE [Suspect]
     Indication: PNEUMONIA
     Dosage: 320 MG,
     Dates: start: 20080101, end: 20080101
  2. PROSCAR [Concomitant]
  3. DILTIAZEM [Concomitant]
  4. PRILOSEC [Concomitant]
  5. LIPITOR [Concomitant]
  6. FUROSEMIDE [Concomitant]
  7. METOLAZONE [Concomitant]
  8. REMERON [Concomitant]
  9. PREDNISONE TAB [Concomitant]
  10. ARICEPT [Concomitant]

REACTIONS (9)
  - BLOOD PRESSURE DECREASED [None]
  - BLOOD SODIUM DECREASED [None]
  - DRUG ERUPTION [None]
  - HAEMATOCRIT DECREASED [None]
  - HAEMOGLOBIN DECREASED [None]
  - LUNG NEOPLASM MALIGNANT [None]
  - PNEUMONIA [None]
  - RASH MACULO-PAPULAR [None]
  - STEVENS-JOHNSON SYNDROME [None]
